FAERS Safety Report 21666891 (Version 1)
Quarter: 2022Q4

REPORT INFORMATION
  Report Type: Spontaneous
  Country: US (occurrence: US)
  Receive Date: 20221201
  Receipt Date: 20221201
  Transmission Date: 20230113
  Serious: No
  Sender: FDA-Public Use
  Company Number: US-ABBVIE-4185948

PATIENT
  Sex: Female

DRUGS (2)
  1. SKYRIZI [Suspect]
     Active Substance: RISANKIZUMAB-RZAA
     Indication: Psoriatic arthropathy
     Dosage: FIRST ADMIN DATE- SEP 2022
     Route: 058
  2. BYDUREON [Concomitant]
     Active Substance: EXENATIDE
     Indication: Product used for unknown indication

REACTIONS (1)
  - Skin plaque [Not Recovered/Not Resolved]

NARRATIVE: CASE EVENT DATE: 20220101
